FAERS Safety Report 23291678 (Version 2)
Quarter: 2025Q1

REPORT INFORMATION
  Report Type: Spontaneous
  Country: US (occurrence: US)
  Receive Date: 20231213
  Receipt Date: 20250108
  Transmission Date: 20250409
  Serious: No
  Sender: NOBELPHARMA AMERICA, LLC
  Company Number: US-Nobelpharma America, LLC-NPA-2023-02420

PATIENT
  Sex: Female

DRUGS (4)
  1. HYFTOR [Suspect]
     Active Substance: SIROLIMUS
     Indication: Tuberous sclerosis complex
     Dosage: APPLY 1 APPLICATION TOPICALLY TWICE A DAY
     Dates: start: 20231125
  2. CLINDAMYCIN GEL 1% [Concomitant]
  3. EVEROLIMUS [Concomitant]
     Active Substance: EVEROLIMUS
  4. MULTIVITAMIN CHW CHILD [Concomitant]

REACTIONS (1)
  - Rash [Unknown]
